FAERS Safety Report 5076977-0 (Version None)
Quarter: 2006Q3

REPORT INFORMATION
  Report Type: 
  Country: None (occurrence: None)
  Receive Date: 20060810
  Receipt Date: 20060731
  Transmission Date: 20061208
  Serious: Yes (Life-Threatening)
  Sender: FDA-Public Use
  Company Number: FR-GLAXOSMITHKLINE-B0432610A

PATIENT
  Age: 85 Year
  Sex: Female

DRUGS (6)
  1. NIMBEX [Suspect]
     Route: 042
     Dates: start: 20060202, end: 20060202
  2. CELOCURINE [Suspect]
     Dosage: 50MG PER DAY
     Route: 042
     Dates: start: 20060202, end: 20060202
  3. HYPNOMIDATE [Suspect]
     Route: 042
     Dates: start: 20060202, end: 20060202
  4. DIPRIVAN [Suspect]
     Route: 042
     Dates: start: 20060202, end: 20060202
  5. SUFENTANIL CITRATE [Suspect]
     Route: 042
     Dates: start: 20060202, end: 20060202
  6. CEFAZOLIN SODIUM [Suspect]
     Dosage: 2G PER DAY
     Route: 042
     Dates: start: 20060202, end: 20060202

REACTIONS (3)
  - ANAPHYLACTIC SHOCK [None]
  - GENERALISED ERYTHEMA [None]
  - HYPOTENSION [None]
